FAERS Safety Report 9061571 (Version 1)
Quarter: 2013Q1

REPORT INFORMATION
  Report Type: Spontaneous
  Country: NL (occurrence: NL)
  Receive Date: 20130204
  Receipt Date: 20130204
  Transmission Date: 20140127
  Serious: Yes (Death)
  Sender: FDA-Public Use
  Company Number: PHHY2013NL009834

PATIENT
  Sex: Male

DRUGS (4)
  1. ZOMETA [Suspect]
     Indication: PROSTATE CANCER METASTATIC
     Dosage: 4 MG/100ML, 1 X 28 DAYS
  2. ZOMETA [Suspect]
     Dosage: 4 MG/100ML, 1 X 28 DAYS
     Dates: start: 20110218
  3. ZOMETA [Suspect]
     Dosage: 4 MG/100ML, 1 X 28 DAYS
     Dates: start: 20121227
  4. ZOMETA [Suspect]
     Dosage: 4 MG/100ML, 1 X 28 DAYS
     Dates: start: 20130122

REACTIONS (1)
  - Death [Fatal]
